FAERS Safety Report 8791401 (Version 1)
Quarter: 2012Q4

REPORT INFORMATION
  Report Type: Spontaneous
  Country: US (occurrence: None)
  Receive Date: 20120914
  Receipt Date: 20120914
  Transmission Date: 20130627
  Serious: Yes (Hospitalization)
  Sender: FDA-Public Use
  Company Number: None

PATIENT
  Sex: Male
  Weight: 92.99 kg

DRUGS (2)
  1. IBUPROFEN [Suspect]
     Indication: PSORIATIC ARTHRITIS
     Dosage: 800 mg 2-3x/day oral
     Route: 048
     Dates: start: 2008, end: 201208
  2. IBUPROFEN [Suspect]
     Indication: PAIN
     Dosage: 800 mg 2-3x/day oral
     Route: 048
     Dates: start: 2008, end: 201208

REACTIONS (1)
  - Meningitis aseptic [None]
